FAERS Safety Report 24250813 (Version 1)
Quarter: 2024Q3

REPORT INFORMATION
  Report Type: Spontaneous
  Country: CA (occurrence: CA)
  Receive Date: 20240826
  Receipt Date: 20240826
  Transmission Date: 20241017
  Serious: Yes (Life-Threatening, Hospitalization, Other)
  Sender: DAIICHI
  Company Number: CA-AstraZeneca-2024A190402

PATIENT
  Age: 47 Year
  Sex: Female
  Weight: 68 kg

DRUGS (1)
  1. TRASTUZUMAB DERUXTECAN [Suspect]
     Active Substance: TRASTUZUMAB DERUXTECAN
     Indication: Breast cancer metastatic
     Dosage: 409 MG,1 EVERY 56 HOURS
     Route: 042

REACTIONS (5)
  - Blood lactic acid increased [Recovering/Resolving]
  - Hypotension [Recovering/Resolving]
  - Renal failure [Recovering/Resolving]
  - Septic shock [Recovering/Resolving]
  - Urosepsis [Recovering/Resolving]
